FAERS Safety Report 6750495-3 (Version None)
Quarter: 2010Q2

REPORT INFORMATION
  Report Type: 
  Country: None (occurrence: None)
  Receive Date: 20100527
  Receipt Date: 20100515
  Transmission Date: 20101027
  Serious: Yes (Other)
  Sender: FDA-Public Use
  Company Number: DSM-2010-00738

PATIENT
  Sex: Female

DRUGS (1)
  1. OLMESARTAN MEDOXOMIL (OLMESARTAN MEDOXOMIL) (TABLET) (OLMESARTAN MEDOX [Suspect]
     Indication: HYPERTENSION
     Dosage: 10 MG (10 MG, 1 IN 1 D), ORAL
     Route: 048

REACTIONS (3)
  - ALOPECIA [None]
  - CONDITION AGGRAVATED [None]
  - PSORIASIS [None]
